FAERS Safety Report 15153705 (Version 1)
Quarter: 2018Q3

REPORT INFORMATION
  Report Type: Spontaneous
  Country: US (occurrence: US)
  Receive Date: 20180717
  Receipt Date: 20180717
  Transmission Date: 20181010
  Serious: No
  Sender: FDA-Public Use
  Company Number: PHEH2018US029043

PATIENT
  Age: 57 Year
  Sex: Female

DRUGS (1)
  1. HYDROXYCHLOROQUINE SULFATE TABLETS USP [Suspect]
     Active Substance: HYDROXYCHLOROQUINE SULFATE
     Indication: PRODUCT USED FOR UNKNOWN INDICATION
     Dosage: UNK
     Route: 065

REACTIONS (2)
  - Throat irritation [Unknown]
  - Urticaria [Unknown]
